FAERS Safety Report 22185193 (Version 1)
Quarter: 2023Q2

REPORT INFORMATION
  Report Type: Spontaneous
  Country: PK (occurrence: PK)
  Receive Date: 20230407
  Receipt Date: 20230407
  Transmission Date: 20230722
  Serious: Yes (Death, Hospitalization, Other)
  Sender: FDA-Public Use
  Company Number: PK-STERISCIENCE B.V.-2023-ST-001084

PATIENT
  Age: 75 Year
  Sex: Male

DRUGS (13)
  1. VANCOMYCIN [Suspect]
     Active Substance: VANCOMYCIN
     Indication: Meningoencephalitis amoebic
     Dosage: UNK
     Route: 065
     Dates: start: 201610
  2. MEROPENEM [Suspect]
     Active Substance: MEROPENEM
     Indication: Meningoencephalitis amoebic
     Dosage: UNK
     Route: 065
     Dates: start: 201610
  3. DEXAMETHASONE [Suspect]
     Active Substance: DEXAMETHASONE
     Indication: Meningoencephalitis amoebic
     Dosage: UNK
     Route: 065
     Dates: start: 201610
  4. AMPHOTERICIN B [Suspect]
     Active Substance: AMPHOTERICIN B
     Indication: Meningoencephalitis amoebic
     Dosage: 1.5 MILLIGRAM/KILOGRAM, 12 HOURS (BID) (FOR THREE DAYS)
     Route: 065
     Dates: start: 201610
  5. AMPHOTERICIN B [Suspect]
     Active Substance: AMPHOTERICIN B
     Dosage: 1 MILLIGRAM/KILOGRAM, QD
     Route: 042
     Dates: start: 201610
  6. AMPHOTERICIN B [Suspect]
     Active Substance: AMPHOTERICIN B
     Dosage: 1.5 MILLIGRAM
     Route: 037
     Dates: start: 201610
  7. AZITHROMYCIN [Suspect]
     Active Substance: AZITHROMYCIN
     Indication: Meningoencephalitis amoebic
     Dosage: 10 MILLIGRAM/KILOGRAM, QD
     Route: 065
     Dates: start: 201610
  8. FLUCONAZOLE [Suspect]
     Active Substance: FLUCONAZOLE
     Indication: Meningoencephalitis amoebic
     Dosage: 800 MILLIGRAM, QD (24 HOURS)
     Route: 065
     Dates: start: 201610
  9. RIFAMPIN [Suspect]
     Active Substance: RIFAMPIN
     Indication: Meningoencephalitis amoebic
     Dosage: 600 MILLIGRAM, QD
     Route: 042
     Dates: start: 201610
  10. CHLORPROMAZINE [Suspect]
     Active Substance: CHLORPROMAZINE
     Indication: Meningoencephalitis amoebic
     Dosage: 2 GRAM, QD
     Route: 065
     Dates: start: 201610
  11. MILTEFOSINE [Suspect]
     Active Substance: MILTEFOSINE
     Indication: Meningoencephalitis amoebic
     Dosage: 150 MILLIGRAM, QD
     Route: 065
     Dates: start: 201610
  12. CEFTRIAXONE [Concomitant]
     Active Substance: CEFTRIAXONE
     Indication: Antibiotic therapy
     Dosage: UNK
     Route: 042
     Dates: start: 201610
  13. ACYCLOVIR [Concomitant]
     Active Substance: ACYCLOVIR
     Indication: Antiviral treatment
     Dosage: UNK
     Route: 065
     Dates: start: 201610

REACTIONS (1)
  - Drug ineffective for unapproved indication [Fatal]

NARRATIVE: CASE EVENT DATE: 20161001
